FAERS Safety Report 5408336-2 (Version None)
Quarter: 2007Q3

REPORT INFORMATION
  Report Type: 
  Country: None (occurrence: None)
  Receive Date: 20070803
  Receipt Date: 20070720
  Transmission Date: 20080115
  Serious: Yes (Hospitalization)
  Sender: FDA-Public Use
  Company Number: 8025726

PATIENT
  Age: 44 Year
  Sex: Female

DRUGS (4)
  1. KEPPRA [Suspect]
     Indication: EPILEPSY
     Dosage: 1 G 2/D
     Dates: start: 20060801
  2. LAMOTRIGINE [Concomitant]
  3. OXCARBAZEPINE [Concomitant]
  4. VALPROIC ACID [Concomitant]

REACTIONS (3)
  - DRUG LEVEL DECREASED [None]
  - GRAND MAL CONVULSION [None]
  - TREATMENT NONCOMPLIANCE [None]
